FAERS Safety Report 9837370 (Version 1)
Quarter: 2014Q1

REPORT INFORMATION
  Report Type: Spontaneous
  Country: US (occurrence: US)
  Receive Date: 20140123
  Receipt Date: 20140123
  Transmission Date: 20141002
  Serious: Yes (Other)
  Sender: FDA-Public Use
  Company Number: US-PFIZER INC-2014021159

PATIENT
  Sex: Female

DRUGS (1)
  1. NEURONTIN [Suspect]
     Dosage: UNK
     Dates: start: 2010, end: 201312

REACTIONS (10)
  - Diplopia [Not Recovered/Not Resolved]
  - Viral infection [Not Recovered/Not Resolved]
  - Somnolence [Unknown]
  - Fatigue [Unknown]
  - Pyrexia [Unknown]
  - Dyskinesia [Unknown]
  - Amnesia [Unknown]
  - Dizziness [Unknown]
  - Coordination abnormal [Unknown]
  - Speech disorder [Unknown]
